FAERS Safety Report 7485933-4 (Version None)
Quarter: 2011Q2

REPORT INFORMATION
  Report Type: 
  Country: None (occurrence: None)
  Receive Date: 20110517
  Receipt Date: 20110316
  Transmission Date: 20111010
  Serious: Yes (Hospitalization, Other)
  Sender: FDA-Public Use
  Company Number: US-BAYER-2010-001457

PATIENT
  Age: 52 Year
  Sex: Female

DRUGS (8)
  1. BETASERON [Suspect]
     Indication: MULTIPLE SCLEROSIS
     Dosage: 2 MIU, QOD
     Route: 058
     Dates: start: 20101129
  2. BETASERON [Suspect]
     Dosage: 8 MIU, QOD
     Route: 058
     Dates: end: 20110305
  3. LEVOTHYROXINE SODIUM [Concomitant]
  4. IBUPROFEN [Concomitant]
  5. DEPAKOTE [Suspect]
     Dosage: DOSE INCREASED
     Dates: start: 20110101
  6. DEPAKOTE [Suspect]
     Dosage: UNK
     Dates: start: 20101228
  7. ACETAMINOPHEN [Concomitant]
  8. SYNTHROID [Concomitant]

REACTIONS (18)
  - VISUAL IMPAIRMENT [None]
  - ABNORMAL SENSATION IN EYE [None]
  - DIARRHOEA [None]
  - EYE PAIN [None]
  - ANAEMIA [None]
  - BLOOD PRESSURE DECREASED [None]
  - VISION BLURRED [None]
  - NAUSEA [None]
  - PAIN [None]
  - ILEUS [None]
  - ABDOMINAL PAIN [None]
  - HALLUCINATION, VISUAL [None]
  - HYPOTHYROIDISM [None]
  - MALAISE [None]
  - ABDOMINAL DISTENSION [None]
  - ASCITES [None]
  - VOMITING [None]
  - HEPATIC ENZYME INCREASED [None]
